FAERS Safety Report 9616933 (Version 1)
Quarter: 2013Q4

REPORT INFORMATION
  Report Type: Spontaneous
  Country: US (occurrence: US)
  Receive Date: 20131011
  Receipt Date: 20131011
  Transmission Date: 20140711
  Serious: No
  Sender: FDA-Public Use
  Company Number: US-BAYER-2013-122960

PATIENT
  Sex: Female

DRUGS (4)
  1. ALEVE CAPLET [Suspect]
     Dosage: 2 DF, BID
     Dates: start: 2000
  2. TYLENOL [PARACETAMOL] [Concomitant]
     Indication: BACK PAIN
  3. TRAMADOL [Concomitant]
  4. CELEBREX [Concomitant]

REACTIONS (3)
  - Abdominal discomfort [None]
  - Drug ineffective [None]
  - Extra dose administered [None]
